FAERS Safety Report 24165958 (Version 1)
Quarter: 2024Q3

REPORT INFORMATION
  Report Type: Spontaneous
  Country: US (occurrence: US)
  Receive Date: 20240802
  Receipt Date: 20240802
  Transmission Date: 20241017
  Serious: No
  Sender: CIPLA
  Company Number: US-CIPLA LTD.-2024US05879

PATIENT

DRUGS (3)
  1. FOSFOMYCIN [Suspect]
     Active Substance: FOSFOMYCIN
     Indication: Urinary tract infection
     Dosage: 1 PACKET AND EVERY 42 HOURS
     Route: 048
  2. FOSFOMYCIN [Suspect]
     Active Substance: FOSFOMYCIN
     Indication: Cystitis
  3. VITAMINS NOS [Concomitant]
     Active Substance: VITAMINS
     Indication: Product used for unknown indication
     Dosage: UNK (DAILY)
     Route: 065

REACTIONS (1)
  - Vulvovaginal discomfort [Not Recovered/Not Resolved]
